FAERS Safety Report 8763953 (Version 1)
Quarter: 2012Q4

REPORT INFORMATION
  Report Type: 
  Country: US (occurrence: US)
  Receive Date: 20120831
  Receipt Date: 20120831
  Transmission Date: 20130627
  Serious: No
  Sender: FDA-Public Use
  Company Number: US-009507513-1208USA007675

PATIENT

DRUGS (9)
  1. VICTRELIS [Suspect]
     Dosage: Every 7-9 hours with food
     Route: 048
  2. PEGASYS [Suspect]
  3. RIBASPHERE [Suspect]
  4. PANTOPRAZOLE [Concomitant]
  5. LISINOPRIL [Concomitant]
  6. ASPIRIN [Concomitant]
  7. TUMS [Concomitant]
  8. METOPROLOL [Concomitant]
  9. VITAMINS (UNSPECIFIED) [Concomitant]

REACTIONS (3)
  - Fatigue [Unknown]
  - Dysgeusia [Unknown]
  - Decreased appetite [Unknown]
